FAERS Safety Report 14788596 (Version 1)
Quarter: 2018Q2

REPORT INFORMATION
  Report Type: Spontaneous
  Country: US (occurrence: US)
  Receive Date: 20180423
  Receipt Date: 20180423
  Transmission Date: 20180711
  Serious: No
  Sender: FDA-Public Use
  Company Number: US-009507513-1804USA006526

PATIENT
  Age: 22 Year
  Sex: Female
  Weight: 49.89 kg

DRUGS (1)
  1. NEXPLANON [Suspect]
     Active Substance: ETONOGESTREL
     Indication: CONTRACEPTION
     Dosage: 1 LEFT ARM IMPLANT EVERY 3 YEARS
     Route: 059
     Dates: start: 20150807

REACTIONS (4)
  - Menstruation irregular [Unknown]
  - Menometrorrhagia [Unknown]
  - Expired product administered [Unknown]
  - Amenorrhoea [Unknown]

NARRATIVE: CASE EVENT DATE: 20180302
